FAERS Safety Report 7810758-7 (Version None)
Quarter: 2011Q4

REPORT INFORMATION
  Report Type: 
  Country: None (occurrence: None)
  Receive Date: 20111006
  Receipt Date: 20110924
  Transmission Date: 20120403
  Serious: Yes (Other)
  Sender: FDA-Public Use
  Company Number: 2011AP002192

PATIENT
  Age: 9 Year
  Sex: Female

DRUGS (7)
  1. PROPRANOLOL [Concomitant]
  2. FLUCONAZOLE [Suspect]
     Indication: VULVOVAGINAL CANDIDIASIS
     Dosage: 100 MG;
  3. AZITHROMYCIN [Concomitant]
  4. CIPROFLOXACIN [Concomitant]
  5. FLUTICASONE PROPIONATE [Suspect]
     Indication: ASTHMA
     Dosage: 220 UG;BID;INH, 440 UG;BID;INH
     Route: 055
  6. ALBUTEROL [Concomitant]
  7. PULMOZYME [Concomitant]

REACTIONS (5)
  - ADRENAL INSUFFICIENCY [None]
  - CUSHING'S SYNDROME [None]
  - DRUG INTERACTION [None]
  - VULVOVAGINAL CANDIDIASIS [None]
  - CYSTIC FIBROSIS RELATED DIABETES [None]
